FAERS Safety Report 16037648 (Version 1)
Quarter: 2019Q1

REPORT INFORMATION
  Report Type: Report from Study
  Country: US (occurrence: US)
  Receive Date: 20190305
  Receipt Date: 20190305
  Transmission Date: 20190418
  Serious: No
  Sender: FDA-Public Use
  Company Number: US-ALEXION PHARMACEUTICALS INC.-A201903051

PATIENT
  Sex: Female

DRUGS (2)
  1. SOLIRIS [Suspect]
     Active Substance: ECULIZUMAB
     Indication: PRODUCT USED FOR UNKNOWN INDICATION
     Dosage: UNK
     Route: 065
  2. REPATHA [Suspect]
     Active Substance: EVOLOCUMAB

REACTIONS (11)
  - Migraine with aura [Unknown]
  - Photosensitivity reaction [Unknown]
  - Nasopharyngitis [Unknown]
  - Influenza like illness [Unknown]
  - Muscle spasms [Unknown]
  - Depression [Unknown]
  - Decreased appetite [Unknown]
  - Adverse reaction [Unknown]
  - Constipation [Unknown]
  - Vomiting [Unknown]
  - Anxiety [Unknown]
